FAERS Safety Report 17598471 (Version 1)
Quarter: 2020Q1

REPORT INFORMATION
  Report Type: Spontaneous
  Country: US (occurrence: US)
  Receive Date: 20200327
  Receipt Date: 20200327
  Transmission Date: 20200409
  Serious: Yes (Hospitalization)
  Sender: FDA-Public Use
  Company Number: None

PATIENT
  Sex: Female

DRUGS (10)
  1. PANTOPRAZOLE [Concomitant]
     Active Substance: PANTOPRAZOLE
  2. LETROZOLE. [Concomitant]
     Active Substance: LETROZOLE
  3. ONDANSETRON [Concomitant]
     Active Substance: ONDANSETRON
  4. LEVETIRACETA [Concomitant]
  5. BENZONATATE. [Concomitant]
     Active Substance: BENZONATATE
  6. ZYRTEC [Concomitant]
     Active Substance: CETIRIZINE HYDROCHLORIDE
  7. ZOLPIDEM [Concomitant]
     Active Substance: ZOLPIDEM TARTRATE
  8. MEMANTINE. [Concomitant]
     Active Substance: MEMANTINE
  9. IBRANCE [Suspect]
     Active Substance: PALBOCICLIB
     Route: 048
     Dates: start: 20180129
  10. VENLAFAXINE [Concomitant]
     Active Substance: VENLAFAXINE HYDROCHLORIDE

REACTIONS (2)
  - Fall [None]
  - Infection [None]
